FAERS Safety Report 5873008-7 (Version None)
Quarter: 2008Q3

REPORT INFORMATION
  Report Type: 
  Country: None (occurrence: None)
  Receive Date: 20080903
  Receipt Date: 20080819
  Transmission Date: 20090109
  Serious: Yes (Other)
  Sender: FDA-Public Use
  Company Number: CIO08014366

PATIENT
  Age: 38 Year
  Sex: Female
  Weight: 63.5 kg

DRUGS (1)
  1. METAMUCIL, VERSION/TEXTURE /FLAVOR UNKNOWN (PSYLLIUM HYDROPHLIC MUCILL [Suspect]
     Dosage: ORAL, RESPIRATORY
     Route: 048
     Dates: start: 20060819

REACTIONS (16)
  - ANAPHYLACTIC SHOCK [None]
  - AURICULAR SWELLING [None]
  - DYSPNOEA [None]
  - EAR PRURITUS [None]
  - EYE PRURITUS [None]
  - EYE SWELLING [None]
  - HYPERSENSITIVITY [None]
  - LACRIMATION INCREASED [None]
  - LIP SWELLING [None]
  - NASAL DISCOMFORT [None]
  - NASAL OEDEMA [None]
  - ORAL PRURITUS [None]
  - PHARYNGEAL OEDEMA [None]
  - RHINORRHOEA [None]
  - SWOLLEN TONGUE [None]
  - THROAT IRRITATION [None]
